FAERS Safety Report 4538052-0 (Version None)
Quarter: 2004Q4

REPORT INFORMATION
  Report Type: 
  Country: None (occurrence: None)
  Receive Date: 20041223
  Receipt Date: 20041223
  Transmission Date: 20050328
  Serious: No
  Sender: FDA-Public Use
  Company Number: None

PATIENT
  Age: 28 Year
  Sex: Male
  Weight: 81.6475 kg

DRUGS (1)
  1. ALBUTEROL [Suspect]
     Indication: ASTHMA
     Dosage: 2 PUFFS PRN RESPIRATOR
     Route: 055
     Dates: start: 19960101, end: 20041221

REACTIONS (3)
  - COUGH [None]
  - FOREIGN BODY TRAUMA [None]
  - MEDICATION ERROR [None]
